FAERS Safety Report 4918668-X (Version None)
Quarter: 2006Q1

REPORT INFORMATION
  Report Type: 
  Country: None (occurrence: None)
  Receive Date: 20060222
  Receipt Date: 20060217
  Transmission Date: 20060701
  Serious: Yes (Death)
  Sender: FDA-Public Use
  Company Number: 2006UW02701

PATIENT
  Sex: Female
  Weight: 136.4 kg

DRUGS (2)
  1. SEROQUEL [Suspect]
     Route: 048
  2. HALDOL [Concomitant]

REACTIONS (1)
  - DEATH [None]
